FAERS Safety Report 5163455-3 (Version None)
Quarter: 2006Q4

REPORT INFORMATION
  Report Type: 
  Country: None (occurrence: None)
  Receive Date: 20061124
  Receipt Date: 20061111
  Transmission Date: 20070319
  Serious: Yes (Other)
  Sender: FDA-Public Use
  Company Number: 2006126786

PATIENT
  Sex: Female
  Weight: 72.5755 kg

DRUGS (6)
  1. NEURONTIN [Suspect]
     Indication: TRIGEMINAL NEURALGIA
     Dosage: 1200 MG (3 IN 1 D)
  2. LYRICA [Suspect]
     Indication: TRIGEMINAL NEURALGIA
     Dosage: 200 MG (100 MG, 2 IN 1 D)
     Dates: start: 20060808, end: 20061001
  3. BACLOFEN [Concomitant]
  4. DILANTIN [Concomitant]
  5. EVISTA [Concomitant]
  6. HYDROCHLOROTHIAZIDE WITH  TRIAMTERENE (HYDROCHLOROTHIAZIDE, TRIAMTEREN [Concomitant]

REACTIONS (10)
  - CONDITION AGGRAVATED [None]
  - DISEASE RECURRENCE [None]
  - DRUG INEFFECTIVE [None]
  - GAIT DISTURBANCE [None]
  - NEUROPATHY [None]
  - OEDEMA PERIPHERAL [None]
  - PAIN [None]
  - PARAESTHESIA [None]
  - SOMNOLENCE [None]
  - WEIGHT INCREASED [None]
